FAERS Safety Report 9479102 (Version 1)
Quarter: 2013Q3

REPORT INFORMATION
  Report Type: Spontaneous
  Country: US (occurrence: US)
  Receive Date: 20130827
  Receipt Date: 20130827
  Transmission Date: 20140515
  Serious: Yes (Death)
  Sender: FDA-Public Use
  Company Number: US-GLAXOSMITHKLINE-A1039201A

PATIENT
  Sex: Female

DRUGS (6)
  1. VOTRIENT [Suspect]
     Indication: HEAD AND NECK CANCER
     Dosage: 800MG PER DAY
     Route: 048
     Dates: start: 20130617
  2. NEXAVAR [Suspect]
     Indication: MALIGNANT NEOPLASM OF THORAX
     Dosage: 200MG TWICE PER DAY
     Route: 048
     Dates: start: 20130204
  3. MARINOL [Concomitant]
  4. SKELAXIN [Concomitant]
  5. ZOFRAN [Concomitant]
  6. ZYRTEC [Concomitant]

REACTIONS (1)
  - Death [Fatal]
